FAERS Safety Report 6743878 (Version 4)
Quarter: 2013Q4

REPORT INFORMATION
  Report Type: Spontaneous
  Country: US (occurrence: US)
  Receive Date: 20080829
  Receipt Date: 20131204
  Transmission Date: 20140711
  Serious: Yes (Death, Other)
  Sender: FDA-Public Use
  Company Number: US-PFIZER INC-2008069722

PATIENT
  Age: 45 Year
  Sex: Male

DRUGS (7)
  1. CHANTIX [Suspect]
     Dosage: STARTING MONTH PACK, UNK
     Dates: start: 20071201
  2. CHANTIX [Suspect]
     Dosage: 1 MG (CONTINUING MONTH PACK), UNK
     Dates: start: 20080101, end: 20080210
  3. CARBAMAZEPINE [Concomitant]
     Dosage: 200 MG, UNK
     Dates: start: 20080204
  4. NEXIUM [Concomitant]
     Dosage: 40 MG, UNK
     Dates: start: 20080204
  5. LORAZEPAM [Concomitant]
     Dosage: 1 MG, UNK
     Dates: start: 20080204
  6. LITHIUM CARBONATE [Concomitant]
     Dosage: 300 MG, UNK
     Dates: start: 20080208
  7. DIAZEPAM [Concomitant]
     Dosage: 10 MG, UNK
     Dates: start: 20080208

REACTIONS (10)
  - Completed suicide [Fatal]
  - Suicidal ideation [Unknown]
  - Homicidal ideation [Unknown]
  - Aggression [Unknown]
  - Depression [Unknown]
  - Agitation [Unknown]
  - Mood altered [Unknown]
  - Abnormal behaviour [Unknown]
  - Palpitations [Unknown]
  - Abnormal dreams [Unknown]
